FAERS Safety Report 6466583-5 (Version None)
Quarter: 2009Q4

REPORT INFORMATION
  Report Type: 
  Country: None (occurrence: None)
  Receive Date: 20091201
  Receipt Date: 20091201
  Transmission Date: 20100525
  Serious: Yes (Life-Threatening)
  Sender: FDA-Public Use
  Company Number: None

PATIENT
  Sex: Female
  Weight: 61.2356 kg

DRUGS (1)
  1. OCELLA 3 MG BARR PHARMACEUTICALS [Suspect]
     Indication: CONTRACEPTION
     Dosage: 28 DAY-CONTINUOUS FOR 3 MONTHS DAILY PO 1 YEAR +/- 3 MONTHS
     Route: 048

REACTIONS (3)
  - APPARENT DEATH [None]
  - PANCREATITIS ACUTE [None]
  - PLEURAL EFFUSION [None]
